FAERS Safety Report 4999994-5 (Version None)
Quarter: 2006Q2

REPORT INFORMATION
  Report Type: 
  Country: None (occurrence: None)
  Receive Date: 20060501
  Receipt Date: 20060425
  Transmission Date: 20061013
  Serious: Yes (Hospitalization)
  Sender: FDA-Public Use
  Company Number: 2006055285

PATIENT
  Age: 61 Year
  Sex: Male

DRUGS (8)
  1. ATORVASTATIN CALCIUM [Suspect]
     Indication: HYPERLIPIDAEMIA
     Dosage: 20 MG (D), ORAL
     Route: 048
     Dates: start: 19990101
  2. PERINDOPRIL [Concomitant]
  3. BISOPROLOL [Concomitant]
  4. ACETYLSALICYLIC ACID SRT [Concomitant]
  5. INSULIN [Concomitant]
  6. GLIBENCLAMIDE [Concomitant]
  7. METFORMIN [Concomitant]
  8. AMLODIPINE [Concomitant]

REACTIONS (2)
  - CORONARY ARTERY RESTENOSIS [None]
  - SURGICAL PROCEDURE REPEATED [None]
